FAERS Safety Report 8979882 (Version 1)
Quarter: 2012Q4

REPORT INFORMATION
  Report Type: 
  Country: US (occurrence: US)
  Receive Date: 20121212
  Receipt Date: 20121212
  Transmission Date: 20130627
  Serious: Yes (Hospitalization, Other)
  Sender: FDA-Public Use
  Company Number: US-ASTELLAS-1114733

PATIENT
  Weight: 54.03 kg

DRUGS (2)
  1. TARCEVA [Suspect]
     Indication: MALIGNANT RESPIRATORY TRACT NEOPLASM
     Route: 065
     Dates: start: 20051021, end: 20060302
  2. MEGACE SUSPENSION [Concomitant]
     Route: 065

REACTIONS (8)
  - Thrombophlebitis [Unknown]
  - Chest pain [Unknown]
  - Constipation [Recovered/Resolved]
  - Malaise [Unknown]
  - Asthenia [Unknown]
  - Pain [Unknown]
  - Chromaturia [Unknown]
  - Haemoptysis [Unknown]
